FAERS Safety Report 16805386 (Version 1)
Quarter: 2019Q3

REPORT INFORMATION
  Report Type: Spontaneous
  Country: US (occurrence: US)
  Receive Date: 20190913
  Receipt Date: 20190913
  Transmission Date: 20191005
  Serious: No
  Sender: FDA-Public Use
  Company Number: US-TRIS PHARMA, INC.-19US000135

PATIENT

DRUGS (1)
  1. DYANAVEL XR [Suspect]
     Active Substance: AMPHETAMINE
     Indication: ATTENTION DEFICIT/HYPERACTIVITY DISORDER
     Route: 048

REACTIONS (5)
  - Affect lability [Recovered/Resolved]
  - Emotional disorder [Recovered/Resolved]
  - Rebound effect [Recovered/Resolved]
  - Crying [Recovered/Resolved]
  - Therapeutic response shortened [Not Recovered/Not Resolved]
